FAERS Safety Report 22834451 (Version 4)
Quarter: 2023Q4

REPORT INFORMATION
  Report Type: Spontaneous
  Country: US (occurrence: US)
  Receive Date: 20230817
  Receipt Date: 20231113
  Transmission Date: 20240109
  Serious: No
  Sender: FDA-Public Use
  Company Number: US-Blueprint Medicines Corporation-1354

PATIENT
  Sex: Female

DRUGS (1)
  1. AYVAKIT [Suspect]
     Active Substance: AVAPRITINIB
     Indication: Systemic mastocytosis
     Route: 065
     Dates: start: 20230721

REACTIONS (14)
  - Lower respiratory tract infection [Unknown]
  - COVID-19 [Recovering/Resolving]
  - Dehydration [Unknown]
  - Hypersomnia [Unknown]
  - Pyrexia [Unknown]
  - Insomnia [Unknown]
  - Unevaluable event [Unknown]
  - Periorbital swelling [Unknown]
  - Swelling face [Unknown]
  - Post-acute COVID-19 syndrome [Recovering/Resolving]
  - Intentional dose omission [Unknown]
  - Muscle spasms [Unknown]
  - Rash [Unknown]
  - Hyperhidrosis [Unknown]
